FAERS Safety Report 19294042 (Version 1)
Quarter: 2021Q2

REPORT INFORMATION
  Report Type: Spontaneous
  Country: US (occurrence: US)
  Receive Date: 20210524
  Receipt Date: 20210524
  Transmission Date: 20210717
  Serious: No
  Sender: FDA-Public Use
  Company Number: None

PATIENT
  Sex: Female

DRUGS (27)
  1. OXYBUTYNIN ER [Concomitant]
     Active Substance: OXYBUTYNIN
  2. RHINOCORT AQUA [Concomitant]
     Active Substance: BUDESONIDE
  3. ZYRTEC [Concomitant]
     Active Substance: CETIRIZINE HYDROCHLORIDE
  4. MAXALT [Concomitant]
     Active Substance: RIZATRIPTAN BENZOATE
  5. RIBOFLAVIN [Concomitant]
     Active Substance: RIBOFLAVIN
  6. RPINIROLE [Concomitant]
  7. CIPROFLOXACIN. [Concomitant]
     Active Substance: CIPROFLOXACIN
  8. IBUPROFEN. [Concomitant]
     Active Substance: IBUPROFEN
  9. PILOCARPINE. [Concomitant]
     Active Substance: PILOCARPINE
  10. VITAMIN D3 [Concomitant]
     Active Substance: CHOLECALCIFEROL
  11. GILENYA [Suspect]
     Active Substance: FINGOLIMOD HYDROCHLORIDE
     Indication: MULTIPLE SCLEROSIS
     Dosage: ?          OTHER FREQUENCY:Q48HR;?
     Route: 048
     Dates: start: 20200729
  12. CRANBERRY. [Concomitant]
     Active Substance: CRANBERRY
  13. NARATRIPTAN [Concomitant]
     Active Substance: NARATRIPTAN HYDROCHLORIDE
  14. PANTOPRAZOLE [Concomitant]
     Active Substance: PANTOPRAZOLE
  15. CHLORHEX GLU [Concomitant]
     Active Substance: CHLORHEXIDINE GLUCONATE
  16. HYDROCO/APAP [Concomitant]
     Active Substance: ACETAMINOPHEN\HYDROCODONE
  17. CELEXA [Concomitant]
     Active Substance: CITALOPRAM HYDROBROMIDE
  18. DEXAMETHASON [Concomitant]
     Active Substance: DEXAMETHASONE
  19. ESCITALOPRAM [Concomitant]
     Active Substance: ESCITALOPRAM OXALATE
  20. GILENYA [Concomitant]
     Active Substance: FINGOLIMOD HYDROCHLORIDE
  21. TOPAMAX [Concomitant]
     Active Substance: TOPIRAMATE
  22. TYLENOL [Concomitant]
     Active Substance: ACETAMINOPHEN
  23. BACLOFEN. [Concomitant]
     Active Substance: BACLOFEN
  24. NITROFURANTIN [Concomitant]
     Active Substance: NITROFURANTOIN
  25. REQUIP [Concomitant]
     Active Substance: ROPINIROLE HYDROCHLORIDE
  26. SF 5000 PLUS CRE [Concomitant]
  27. TOPIRAMATE. [Concomitant]
     Active Substance: TOPIRAMATE

REACTIONS (1)
  - Multiple sclerosis [None]
